FAERS Safety Report 4961457-0 (Version None)
Quarter: 2006Q2

REPORT INFORMATION
  Report Type: 
  Country: None (occurrence: None)
  Receive Date: 20060403
  Receipt Date: 20051107
  Transmission Date: 20061013
  Serious: Yes (Death, Other)
  Sender: FDA-Public Use
  Company Number: US-MERCK-0511USA01340

PATIENT
  Age: 76 Year
  Sex: Female

DRUGS (12)
  1. VIOXX [Suspect]
     Indication: ARTHRITIS
     Route: 048
     Dates: start: 20010929, end: 20040128
  2. ATACAND [Concomitant]
     Route: 065
  3. LEXAPRO [Concomitant]
     Route: 065
  4. LANOXIN [Concomitant]
     Route: 065
  5. COUMADIN [Concomitant]
     Route: 065
  6. AMIODARONE MSD [Concomitant]
     Route: 065
  7. TRIMOX [Concomitant]
     Route: 065
  8. ZITHROMAX [Concomitant]
     Route: 065
  9. TRICINOLON [Concomitant]
     Route: 065
  10. AMOXICILLIN [Concomitant]
     Route: 065
  11. PROMETRIUM [Concomitant]
     Route: 065
  12. ACTONEL [Concomitant]
     Route: 065

REACTIONS (5)
  - ABDOMINAL PAIN UPPER [None]
  - CARDIAC VALVE DISEASE [None]
  - DEPRESSION [None]
  - MYOCARDIAL INFARCTION [None]
  - SUDDEN DEATH [None]
